FAERS Safety Report 9541365 (Version 1)
Quarter: 2013Q3

REPORT INFORMATION
  Report Type: Spontaneous
  Country: US (occurrence: US)
  Receive Date: 20130923
  Receipt Date: 20130923
  Transmission Date: 20140515
  Serious: No
  Sender: FDA-Public Use
  Company Number: US-009507513-1309USA004500

PATIENT
  Sex: 0

DRUGS (2)
  1. PROVENTIL [Suspect]
     Indication: COUGH
     Dosage: 2 PUFFS EVERY 4 FOURS, PRN
  2. PROVENTIL [Suspect]
     Indication: DYSPNOEA

REACTIONS (3)
  - Drug dose omission [Unknown]
  - Product quality issue [Unknown]
  - No adverse event [Unknown]
